FAERS Safety Report 6340590-5 (Version None)
Quarter: 2009Q4

REPORT INFORMATION
  Report Type: 
  Country: None (occurrence: None)
  Receive Date: 20090902
  Receipt Date: 20090824
  Transmission Date: 20100525
  Serious: Yes (Other)
  Sender: FDA-Public Use
  Company Number: 2009US003275

PATIENT
  Age: 61 Year
  Sex: Male

DRUGS (4)
  1. PROGRAF [Suspect]
     Indication: RENAL TRANSPLANT
     Dosage: 1.5 MG, BID
  2. CORTICOSTEROID NOS(CORTICOSTEROID NOS) [Suspect]
     Indication: RENAL TRANSPLANT
  3. MYCOPHENOLATE MOFETIL [Suspect]
     Indication: RENAL TRANSPLANT
  4. ANTI-THYMOCYTE GLOBULIN NOS [Concomitant]

REACTIONS (6)
  - BK VIRUS INFECTION [None]
  - COMPLICATIONS OF TRANSPLANTED KIDNEY [None]
  - INFECTION IN AN IMMUNOCOMPROMISED HOST [None]
  - NEPHROPATHY TOXIC [None]
  - PYREXIA [None]
  - URETERAL NECROSIS [None]
